FAERS Safety Report 20419550 (Version 1)
Quarter: 2022Q1

REPORT INFORMATION
  Report Type: Spontaneous
  Country: US (occurrence: US)
  Receive Date: 20220203
  Receipt Date: 20220203
  Transmission Date: 20220423
  Serious: No
  Sender: FDA-Public Use
  Company Number: US-GW PHARMA-202201USGW00458

PATIENT
  Sex: Female
  Weight: 58.957 kg

DRUGS (1)
  1. EPIDIOLEX [Suspect]
     Active Substance: CANNABIDIOL
     Indication: Lennox-Gastaut syndrome
     Dosage: 10.18 MG/KG/DAY, 300 MILLIGRAM, BID
     Route: 048
     Dates: start: 202111

REACTIONS (1)
  - Behaviour disorder [Unknown]
